FAERS Safety Report 7444154-1 (Version None)
Quarter: 2011Q2

REPORT INFORMATION
  Report Type: 
  Country: None (occurrence: None)
  Receive Date: 20110426
  Receipt Date: 20110426
  Transmission Date: 20111010
  Serious: Yes (Life-Threatening)
  Sender: FDA-Public Use
  Company Number: None

PATIENT
  Age: 59 Year
  Sex: Female
  Weight: 48.5349 kg

DRUGS (2)
  1. TRIAD ALCOHOL WIPES TRIAD [Suspect]
     Indication: MULTIPLE SCLEROSIS
     Dosage: ONE WIPE PER INJECTION SITE DAILY TOP
     Route: 061
     Dates: start: 20070612, end: 20110425
  2. TRIAD ALCOHOL WIPES TRIAD [Suspect]

REACTIONS (6)
  - PRODUCT QUALITY ISSUE [None]
  - WEIGHT DECREASED [None]
  - MALAISE [None]
  - BACTERIAL INFECTION [None]
  - TRANSMISSION OF AN INFECTIOUS AGENT VIA A MEDICINAL PRODUCT [None]
  - NIGHT SWEATS [None]
